FAERS Safety Report 10195746 (Version 1)
Quarter: 2014Q2

REPORT INFORMATION
  Report Type: Spontaneous
  Country: US (occurrence: US)
  Receive Date: 20140527
  Receipt Date: 20140527
  Transmission Date: 20141212
  Serious: No
  Sender: FDA-Public Use
  Company Number: US-009507513-1405USA008204

PATIENT
  Sex: Female

DRUGS (2)
  1. NEXPLANON [Suspect]
     Dosage: 68 MG, EVERY 3 YEARS
     Route: 059
     Dates: start: 20140514, end: 20140514
  2. NEXPLANON [Suspect]
     Dosage: 68 MG, EVERY 3 YEARS
     Route: 059
     Dates: start: 20140514

REACTIONS (3)
  - Device difficult to use [Unknown]
  - Product quality issue [Unknown]
  - No adverse event [Unknown]
